FAERS Safety Report 6964044-8 (Version None)
Quarter: 2010Q3

REPORT INFORMATION
  Report Type: 
  Country: None (occurrence: None)
  Receive Date: 20100902
  Receipt Date: 20100811
  Transmission Date: 20110219
  Serious: Yes (Other)
  Sender: FDA-Public Use
  Company Number: ES-AMGEN-KDL424835

PATIENT
  Sex: Male

DRUGS (12)
  1. CINACALCET HYDROCHLORIDE [Suspect]
     Indication: HYPERPARATHYROIDISM SECONDARY
     Route: 048
     Dates: start: 20090101
  2. SODIUM BICARBONATE [Concomitant]
  3. FOSRENOL [Concomitant]
  4. ZARATOR [Concomitant]
  5. OMEPRAZOLE [Concomitant]
  6. RENAGEL [Concomitant]
  7. ALLOPURINOL [Concomitant]
  8. PEPSAMAR [Concomitant]
  9. OLMESARTAN MEDOXOMIL [Concomitant]
  10. PREDNISONE [Concomitant]
  11. NEBIVOLOL HCL [Concomitant]
  12. HYDROCHLOROTHIAZIDE [Concomitant]

REACTIONS (1)
  - ERECTILE DYSFUNCTION [None]
